FAERS Safety Report 11142763 (Version 1)
Quarter: 2015Q2

REPORT INFORMATION
  Report Type: Report from Study
  Country: DO (occurrence: DO)
  Receive Date: 20150527
  Receipt Date: 20150527
  Transmission Date: 20150821
  Serious: Yes (Hospitalization, Congenital Anomaly)
  Sender: FDA-Public Use
  Company Number: DO-GILEAD-2015-0148694

PATIENT
  Age: 0 Day
  Sex: Male
  Weight: 2.27 kg

DRUGS (9)
  1. CIPROFLOXACIN. [Concomitant]
     Active Substance: CIPROFLOXACIN
  2. DICLOFENAC [Concomitant]
     Active Substance: DICLOFENAC
  3. PROTEIN [Concomitant]
     Active Substance: PROTEIN
     Route: 064
  4. VITAMIN B12 [Concomitant]
     Active Substance: CYANOCOBALAMIN
  5. IBUPROFEN. [Concomitant]
     Active Substance: IBUPROFEN
  6. FERROUS                            /00023501/ [Concomitant]
     Route: 064
  7. NIMESULIDE [Concomitant]
     Active Substance: NIMESULIDE
  8. ELVITEGRAVIR/EMTRICITABINE/TENOFOVIR DF/COBICISTAT [Suspect]
     Active Substance: COBICISTAT\ELVITEGRAVIR\EMTRICITABINE\TENOFOVIR
     Indication: HIV INFECTION
     Dosage: UNK
     Route: 064
     Dates: start: 20140721, end: 20140814
  9. PRENATAL VITAMINS                  /02014401/ [Concomitant]
     Active Substance: VITAMINS
     Route: 064

REACTIONS (2)
  - Premature baby [Unknown]
  - Cryptorchism [Unknown]

NARRATIVE: CASE EVENT DATE: 20150331
